FAERS Safety Report 6679863-5 (Version None)
Quarter: 2010Q2

REPORT INFORMATION
  Report Type: 
  Country: None (occurrence: None)
  Receive Date: 20100413
  Receipt Date: 20090716
  Transmission Date: 20101027
  Serious: No
  Sender: FDA-Public Use
  Company Number: US-BRISTOL-MYERS SQUIBB COMPANY-14663108

PATIENT
  Age: 74 Year
  Sex: Female

DRUGS (3)
  1. METAGLIP [Suspect]
     Indication: DIABETES MELLITUS
     Dosage: STOPPED AND RESTARTED IN FEB08 1DF=5/500MG2
     Dates: start: 20071030
  2. WARFARIN [Suspect]
     Dosage: 6 MG TABLET ALTERNATED WITH 3 MG TABLET
     Dates: start: 20090501
  3. VANCOMYCIN [Suspect]

REACTIONS (1)
  - ABDOMINAL DISCOMFORT [None]
